FAERS Safety Report 26043015 (Version 1)
Quarter: 2025Q4

REPORT INFORMATION
  Report Type: Spontaneous
  Country: US (occurrence: US)
  Receive Date: 20251113
  Receipt Date: 20251113
  Transmission Date: 20260118
  Serious: No
  Sender: ANI
  Company Number: US-ANIPHARMA-2025-US-047760

PATIENT
  Sex: Female

DRUGS (2)
  1. BIMZELX PFS (1/PK) [Concomitant]
  2. CORTICOTROPIN [Suspect]
     Active Substance: CORTICOTROPIN
     Indication: Psoriatic arthropathy
     Dosage: 80U TWICE WEEKLY
     Route: 058
     Dates: start: 202505

REACTIONS (1)
  - Candida infection [Unknown]
